FAERS Safety Report 18528026 (Version 2)
Quarter: 2021Q2

REPORT INFORMATION
  Report Type: Spontaneous
  Country: US (occurrence: US)
  Receive Date: 20201120
  Receipt Date: 20210422
  Transmission Date: 20210717
  Serious: Yes (Other)
  Sender: FDA-Public Use
  Company Number: US-ASTRAZENECA-2020SF50980

PATIENT
  Age: 21717 Day
  Sex: Male
  Weight: 54.4 kg

DRUGS (71)
  1. BABY ASPIRIN [Concomitant]
     Active Substance: ASPIRIN
     Indication: MYOCARDIAL INFARCTION
     Route: 065
     Dates: start: 2004
  2. TUMS [Concomitant]
     Active Substance: CALCIUM CARBONATE
     Dosage: 2 TABLETS PER WEEK AT GREATEST USE
     Route: 065
     Dates: start: 1999, end: 2018
  3. ENDOCET [Concomitant]
     Active Substance: ACETAMINOPHEN\OXYCODONE HYDROCHLORIDE
  4. PRAVACHOL [Concomitant]
     Active Substance: PRAVASTATIN SODIUM
  5. OFLOXACIN. [Concomitant]
     Active Substance: OFLOXACIN
  6. CYCLOBENZAPRINE. [Concomitant]
     Active Substance: CYCLOBENZAPRINE
  7. SULAR [Concomitant]
     Active Substance: NISOLDIPINE
  8. PRILOSEC [Suspect]
     Active Substance: OMEPRAZOLE MAGNESIUM
     Indication: GASTROOESOPHAGEAL REFLUX DISEASE
     Dosage: GENERIC
     Route: 048
     Dates: start: 20140206
  9. KETOCONAZOLE. [Concomitant]
     Active Substance: KETOCONAZOLE
  10. HYDROCODONE?APAP [Concomitant]
     Active Substance: ACETAMINOPHEN\HYDROCODONE
  11. OXYCODONE [Concomitant]
     Active Substance: OXYCODONE
  12. PREDNISOLONE. [Concomitant]
     Active Substance: PREDNISOLONE
  13. LEVOFLOXACIN. [Concomitant]
     Active Substance: LEVOFLOXACIN
  14. POTASSIUM CHLORIDE. [Concomitant]
     Active Substance: POTASSIUM CHLORIDE
  15. CEFUROXIME. [Concomitant]
     Active Substance: CEFUROXIME
  16. SIMVASTATIN. [Concomitant]
     Active Substance: SIMVASTATIN
  17. PRILOSEC [Suspect]
     Active Substance: OMEPRAZOLE MAGNESIUM
     Indication: GASTROOESOPHAGEAL REFLUX DISEASE
     Dosage: GENERIC
     Route: 065
     Dates: start: 2002, end: 2019
  18. PLAVIX [Concomitant]
     Active Substance: CLOPIDOGREL BISULFATE
     Indication: MYOCARDIAL INFARCTION
     Route: 065
     Dates: start: 2006, end: 2012
  19. MYLANTA [Concomitant]
     Active Substance: ALUMINUM HYDROXIDE\DIMETHICONE\MAGNESIUM HYDROXIDE
     Route: 065
     Dates: start: 2018, end: 2019
  20. AMLODIPINE [Concomitant]
     Active Substance: AMLODIPINE BESYLATE
  21. LIDOCAINE. [Concomitant]
     Active Substance: LIDOCAINE
  22. CRESTOR [Concomitant]
     Active Substance: ROSUVASTATIN CALCIUM
  23. CLOBETASOL [Concomitant]
     Active Substance: CLOBETASOL
  24. METRONIDAZOLE. [Concomitant]
     Active Substance: METRONIDAZOLE
  25. PRILOSEC [Suspect]
     Active Substance: OMEPRAZOLE MAGNESIUM
     Indication: GASTROOESOPHAGEAL REFLUX DISEASE
     Route: 048
     Dates: start: 1998, end: 2014
  26. PRILOSEC [Suspect]
     Active Substance: OMEPRAZOLE MAGNESIUM
     Indication: GASTROOESOPHAGEAL REFLUX DISEASE
     Route: 048
     Dates: start: 1998, end: 2014
  27. PRILOSEC [Suspect]
     Active Substance: OMEPRAZOLE MAGNESIUM
     Indication: GASTROOESOPHAGEAL REFLUX DISEASE
     Dosage: GENERIC
     Route: 048
     Dates: start: 20140206
  28. ALLERGY MEDICATION [Concomitant]
     Active Substance: DIPHENHYDRAMINE HYDROCHLORIDE
     Indication: SEASONAL ALLERGY
     Route: 065
     Dates: start: 2002
  29. AMBIEN [Concomitant]
     Active Substance: ZOLPIDEM TARTRATE
  30. FERROUS SULFATE. [Concomitant]
     Active Substance: FERROUS SULFATE
  31. CYPROHEPTADINE. [Concomitant]
     Active Substance: CYPROHEPTADINE
  32. ONDANSETRON [Concomitant]
     Active Substance: ONDANSETRON
  33. KETOROLAC [Concomitant]
     Active Substance: KETOROLAC TROMETHAMINE
  34. DURAGESIC [Concomitant]
     Active Substance: FENTANYL
  35. QUINAPRIL. [Concomitant]
     Active Substance: QUINAPRIL
  36. MONTELUKAST [Concomitant]
     Active Substance: MONTELUKAST SODIUM
  37. XALATAN [Concomitant]
     Active Substance: LATANOPROST
  38. PRILOSEC [Suspect]
     Active Substance: OMEPRAZOLE MAGNESIUM
     Indication: GASTROOESOPHAGEAL REFLUX DISEASE
     Route: 048
     Dates: start: 1996
  39. PRILOSEC [Suspect]
     Active Substance: OMEPRAZOLE MAGNESIUM
     Indication: GASTROOESOPHAGEAL REFLUX DISEASE
     Dosage: GENERIC
     Route: 065
     Dates: start: 2002, end: 2019
  40. PEPCID COMPLETE [Concomitant]
     Active Substance: CALCIUM CARBONATE\FAMOTIDINE\MAGNESIUM HYDROXIDE
     Route: 065
     Dates: start: 2002, end: 2005
  41. ZANTAC [Concomitant]
     Active Substance: RANITIDINE HYDROCHLORIDE
     Route: 065
     Dates: start: 2002, end: 2005
  42. EPIPEN [Concomitant]
     Active Substance: EPINEPHRINE
  43. METFORMIN [Concomitant]
     Active Substance: METFORMIN HYDROCHLORIDE
  44. TRILYTE [Concomitant]
     Active Substance: POLYETHYLENE GLYCOL 3350\POTASSIUM CHLORIDE\SODIUM BICARBONATE\SODIUM CHLORIDE
  45. PANTOPRAZOLE [Concomitant]
     Active Substance: PANTOPRAZOLE
  46. AZITHROMYCIN ANHYDROUS. [Concomitant]
     Active Substance: AZITHROMYCIN ANHYDROUS
  47. LEVITRA [Concomitant]
     Active Substance: VARDENAFIL HYDROCHLORIDE
  48. VYTORIN [Concomitant]
     Active Substance: EZETIMIBE\SIMVASTATIN
  49. PRILOSEC [Suspect]
     Active Substance: OMEPRAZOLE MAGNESIUM
     Indication: GASTROOESOPHAGEAL REFLUX DISEASE
     Dosage: GENERIC
     Route: 065
     Dates: start: 1996
  50. VITAMIN B12 [Concomitant]
     Active Substance: CYANOCOBALAMIN
     Indication: RED BLOOD CELL ABNORMALITY
     Route: 065
     Dates: start: 2014
  51. ROLAIDS [Concomitant]
     Active Substance: CALCIUM CARBONATE\MAGNESIUM HYDROXIDE
     Route: 065
     Dates: start: 1990, end: 2014
  52. ALKA?SELTZER [Concomitant]
     Active Substance: ANHYDROUS CITRIC ACID\ASPIRIN\SODIUM BICARBONATE
     Route: 065
     Dates: start: 1990
  53. MILK OF MAGNESIA [Concomitant]
     Active Substance: MAGNESIUM HYDROXIDE
     Route: 065
     Dates: start: 2018, end: 2019
  54. HALOPERIDOL. [Concomitant]
     Active Substance: HALOPERIDOL
  55. SILDENAFIL. [Concomitant]
     Active Substance: SILDENAFIL
  56. DYNACIRC [Concomitant]
     Active Substance: ISRADIPINE
  57. CEPHALEXIN. [Concomitant]
     Active Substance: CEPHALEXIN
  58. MICARDIS [Concomitant]
     Active Substance: TELMISARTAN
     Indication: HYPERTENSION
     Route: 065
     Dates: start: 2010, end: 2011
  59. ANASTROZOLE. [Concomitant]
     Active Substance: ANASTROZOLE
  60. ATROPINE. [Concomitant]
     Active Substance: ATROPINE
  61. PRILOSEC [Suspect]
     Active Substance: OMEPRAZOLE MAGNESIUM
     Indication: GASTROOESOPHAGEAL REFLUX DISEASE
     Route: 048
     Dates: start: 1996
  62. ALEVE [Concomitant]
     Active Substance: NAPROXEN SODIUM
     Indication: ANALGESIC THERAPY
     Route: 065
     Dates: start: 2018
  63. PEPTO?BISMOL [Concomitant]
     Active Substance: BISMUTH SUBSALICYLATE
     Indication: DYSPEPSIA
     Route: 065
     Dates: start: 2014
  64. CIALIS [Concomitant]
     Active Substance: TADALAFIL
  65. PROMETHAZINE [Concomitant]
     Active Substance: PROMETHAZINE HYDROCHLORIDE
  66. NYSTATIN. [Concomitant]
     Active Substance: NYSTATIN
  67. CITALOPRAM [Concomitant]
     Active Substance: CITALOPRAM HYDROBROMIDE
  68. MEGESTROL [Concomitant]
     Active Substance: MEGESTROL
  69. GLIPIZIDE. [Concomitant]
     Active Substance: GLIPIZIDE
  70. CIPROFLOXACIN. [Concomitant]
     Active Substance: CIPROFLOXACIN
  71. PRILOSEC [Suspect]
     Active Substance: OMEPRAZOLE MAGNESIUM
     Indication: GASTROOESOPHAGEAL REFLUX DISEASE
     Dosage: GENERIC
     Route: 065
     Dates: start: 1996

REACTIONS (4)
  - Linitis plastica [Unknown]
  - Rebound acid hypersecretion [Not Recovered/Not Resolved]
  - Gastric cancer [Unknown]
  - Adenocarcinoma gastric [Not Recovered/Not Resolved]

NARRATIVE: CASE EVENT DATE: 20140319
